FAERS Safety Report 7108897-1 (Version None)
Quarter: 2010Q4

REPORT INFORMATION
  Report Type: 
  Country: None (occurrence: None)
  Receive Date: 20101117
  Receipt Date: 20100923
  Transmission Date: 20110411
  Serious: No
  Sender: FDA-Public Use
  Company Number: US-BAYER-201022014BCC

PATIENT
  Age: 3 Year
  Sex: Female
  Weight: 14 kg

DRUGS (1)
  1. ALEVE (CAPLET) [Suspect]
     Indication: ACCIDENTAL DRUG INTAKE BY CHILD
     Dosage: A CHILD OPENED THE BOTTLE AND SHE SUCKED ABOUT 3 CAPLETS AS SHE SAID BUT THE MOM FEELS LIKE 3
     Route: 048
     Dates: start: 20100922

REACTIONS (1)
  - NO ADVERSE EVENT [None]
